FAERS Safety Report 7128356-X (Version None)
Quarter: 2010Q4

REPORT INFORMATION
  Report Type: 
  Country: None (occurrence: None)
  Receive Date: 20101130
  Receipt Date: 20101117
  Transmission Date: 20110411
  Serious: Yes (Other)
  Sender: FDA-Public Use
  Company Number: PHHY2010IT78443

PATIENT
  Age: 75 Year
  Sex: Male

DRUGS (4)
  1. EXELON [Suspect]
     Indication: DEMENTIA ALZHEIMER'S TYPE
     Dosage: UNK
     Route: 048
     Dates: start: 20091207, end: 20091210
  2. MICARDIS [Concomitant]
     Dosage: UNK
  3. NORMIX [Concomitant]
     Dosage: UNK
  4. TORVAST [Concomitant]
     Dosage: UNK

REACTIONS (1)
  - HYPERTENSIVE CRISIS [None]
